FAERS Safety Report 9055268 (Version 3)
Quarter: 2013Q1

REPORT INFORMATION
  Report Type: Report from Study
  Country: US (occurrence: US)
  Receive Date: 20130206
  Receipt Date: 20130222
  Transmission Date: 20140127
  Serious: Yes (Hospitalization)
  Sender: FDA-Public Use
  Company Number: US-JNJFOC-20130200520

PATIENT
  Age: 16 None
  Sex: Male
  Weight: 52.8 kg

DRUGS (3)
  1. REMICADE [Suspect]
     Indication: COLITIS ULCERATIVE
     Route: 042
     Dates: start: 20110625
  2. PREDNISONE [Concomitant]
  3. BENADRYL [Concomitant]

REACTIONS (1)
  - Colitis ulcerative [Recovered/Resolved]
